FAERS Safety Report 8991198 (Version 1)
Quarter: 2012Q4

REPORT INFORMATION
  Report Type: Spontaneous
  Country: US (occurrence: None)
  Receive Date: 20121227
  Receipt Date: 20121227
  Transmission Date: 20130627
  Serious: No
  Sender: FDA-Public Use
  Company Number: None

PATIENT

DRUGS (2)
  1. LIDOCAINE [Suspect]
     Indication: PAIN RELIEF
     Dosage: 10 ml - multiple- once IV
     Route: 042
     Dates: start: 20121221, end: 20121222
  2. LIDOCAINE [Suspect]
     Indication: PREOPERATIVE CARE
     Dosage: 10 ml - multiple- once IV
     Route: 042
     Dates: start: 20121221, end: 20121222

REACTIONS (3)
  - Preoperative care [None]
  - Drug ineffective [None]
  - Medication error [None]
